FAERS Safety Report 11965538 (Version 1)
Quarter: 2016Q1

REPORT INFORMATION
  Report Type: Spontaneous
  Country: US (occurrence: None)
  Receive Date: 20160125
  Receipt Date: 20160125
  Transmission Date: 20160526
  Serious: Yes (Hospitalization, Disabling, Congenital Anomaly, Other)
  Sender: FDA-Public Use
  Company Number: None

PATIENT
  Age: 65 Year
  Sex: Female
  Weight: 52.16 kg

DRUGS (1)
  1. LUNESTA [Suspect]
     Active Substance: ESZOPICLONE
     Indication: INSOMNIA
     Dosage: 1 PILL?AT BEDTIME
     Route: 048
     Dates: start: 2009, end: 2016

REACTIONS (4)
  - Tinnitus [None]
  - Cholelithiasis [None]
  - Drug ineffective [None]
  - Gastric disorder [None]

NARRATIVE: CASE EVENT DATE: 20160122
